FAERS Safety Report 6492618-X (Version None)
Quarter: 2009Q4

REPORT INFORMATION
  Report Type: 
  Country: None (occurrence: None)
  Receive Date: 20091214
  Receipt Date: 20091207
  Transmission Date: 20100525
  Serious: Yes (Death)
  Sender: FDA-Public Use
  Company Number: PHHY2009DE54639

PATIENT
  Sex: Male
  Weight: 65 kg

DRUGS (5)
  1. ALISKIREN ALI+ [Suspect]
     Indication: HYPERTENSION
     Dosage: UNK
     Dates: start: 20090109
  2. ORAL ANTIDIABETICS [Concomitant]
     Indication: DIABETES MELLITUS
     Route: 048
  3. DIURETICS [Concomitant]
     Dosage: UNK
  4. ANTIADRENERGIC AGENTS, CENTRALLY ACTING [Concomitant]
  5. PLATELET AGGREGATION INHIBITORS [Concomitant]

REACTIONS (1)
  - DEATH [None]
